FAERS Safety Report 23308310 (Version 1)
Quarter: 2023Q4

REPORT INFORMATION
  Report Type: Spontaneous
  Country: US (occurrence: US)
  Receive Date: 20231218
  Receipt Date: 20231218
  Transmission Date: 20240109
  Serious: No
  Sender: FDA-Public Use
  Company Number: US-SA-SAC20231212000706

PATIENT
  Sex: Female
  Weight: 48 kg

DRUGS (20)
  1. CERDELGA [Suspect]
     Active Substance: ELIGLUSTAT
     Indication: Gaucher^s disease
     Dosage: 84 MG, BID
     Route: 065
     Dates: start: 20190329
  2. FISH OIL\OMEGA-3 FATTY ACIDS [Concomitant]
     Active Substance: FISH OIL\OMEGA-3 FATTY ACIDS
     Dosage: UNK
  3. DIAZEPAM [Concomitant]
     Active Substance: DIAZEPAM
     Dosage: UNK
  4. VITAMIN E [Concomitant]
     Active Substance: .ALPHA.-TOCOPHEROL
     Dosage: UNK
  5. TAURINE [Concomitant]
     Active Substance: TAURINE
     Dosage: UNK
  6. SYNTHROID [Concomitant]
     Active Substance: LEVOTHYROXINE SODIUM
     Dosage: UNK
  7. ARGININE [Concomitant]
     Active Substance: ARGININE
     Dosage: UNK
  8. VITAMIN D3 [Concomitant]
     Active Substance: CHOLECALCIFEROL
     Dosage: UNK
  9. CURCUMIN [Concomitant]
     Active Substance: CURCUMIN
     Dosage: UNK
  10. COLLAGEN HYDROLYSATE [Concomitant]
     Dosage: UNK
  11. ACETYLCYSTEINE [Concomitant]
     Active Substance: ACETYLCYSTEINE
     Dosage: UNK
  12. IODINE TINCTURE [Concomitant]
     Active Substance: IODINE
     Dosage: UNK
  13. VITAMINS [Concomitant]
     Active Substance: VITAMINS
     Dosage: UNK
  14. CEREZYME [Concomitant]
     Active Substance: IMIGLUCERASE
     Dosage: UNK
  15. CALCIUM [Concomitant]
     Active Substance: CALCIUM
     Dosage: UNK
  16. VITAMIN B COMPLEX [Concomitant]
     Active Substance: CYANOCOBALAMIN\DEXPANTHENOL\NIACINAMIDE\PYRIDOXINE HYDROCHLORIDE\RIBOFLAVIN 5^-PHOSPHATE SODIUM\THIA
     Dosage: UNK
  17. MAGNESIUM BISGLYCINATE [Concomitant]
     Dosage: UNK
  18. ASCORBIC ACID [Concomitant]
     Active Substance: ASCORBIC ACID
     Dosage: UNK
  19. CVS COENZYME Q 10 [Concomitant]
     Dosage: UNK
  20. MAGNESIUM [Concomitant]
     Active Substance: MAGNESIUM
     Dosage: UNK

REACTIONS (1)
  - Constipation [Unknown]
